FAERS Safety Report 16675844 (Version 1)
Quarter: 2019Q3

REPORT INFORMATION
  Report Type: Spontaneous
  Country: GB (occurrence: GB)
  Receive Date: 20190807
  Receipt Date: 20190807
  Transmission Date: 20191004
  Serious: Yes (Hospitalization)
  Sender: FDA-Public Use
  Company Number: GB-B.I. PHARMACEUTICALS,INC./RIDGEFIELD-2019-12-002469

PATIENT
  Age: 49 Year
  Sex: Female
  Weight: 76 kg

DRUGS (2)
  1. JARDIANCE [Suspect]
     Active Substance: EMPAGLIFLOZIN
     Dosage: 10MG FROM START DATE UNTIL 06/11/2018 WHEN DOSE INCREASED TO 25MG.
     Route: 048
     Dates: start: 20181107, end: 20190621
  2. JARDIANCE [Suspect]
     Active Substance: EMPAGLIFLOZIN
     Indication: TYPE 2 DIABETES MELLITUS
     Dosage: INITIAL DOSE 10MG FROM START DATE TO 06/11/2018
     Route: 065
     Dates: start: 20160921, end: 20181106

REACTIONS (3)
  - Vomiting [Unknown]
  - Diabetic ketoacidosis [Recovered/Resolved]
  - Diarrhoea [Unknown]

NARRATIVE: CASE EVENT DATE: 20190620
